FAERS Safety Report 24546390 (Version 1)
Quarter: 2024Q4

REPORT INFORMATION
  Report Type: Spontaneous
  Country: CZ (occurrence: CZ)
  Receive Date: 20241024
  Receipt Date: 20241024
  Transmission Date: 20250114
  Serious: Yes (Other)
  Sender: ELI LILLY AND COMPANY
  Company Number: CZ-ELI_LILLY_AND_COMPANY-CZ202410011857

PATIENT
  Age: 64 Year
  Sex: Male

DRUGS (2)
  1. SELPERCATINIB [Suspect]
     Active Substance: SELPERCATINIB
     Indication: Thyroid cancer metastatic
     Dosage: 160 MG, DAILY
     Route: 065
     Dates: start: 20221209
  2. DENOSUMAB [Concomitant]
     Active Substance: DENOSUMAB
     Indication: Thyroid cancer metastatic
     Dosage: UNK, UNKNOWN
     Route: 065

REACTIONS (3)
  - Drug resistance mutation [Unknown]
  - Malignant neoplasm progression [Unknown]
  - Weight increased [Unknown]

NARRATIVE: CASE EVENT DATE: 20231001
